FAERS Safety Report 25146850 (Version 1)
Quarter: 2025Q2

REPORT INFORMATION
  Report Type: Spontaneous
  Country: US (occurrence: US)
  Receive Date: 20250401
  Receipt Date: 20250401
  Transmission Date: 20250717
  Serious: No
  Sender: MYLAN
  Company Number: US-MYLANLABS-2025M1025142

PATIENT
  Sex: Female

DRUGS (2)
  1. XULANE [Suspect]
     Active Substance: ETHINYL ESTRADIOL\NORELGESTROMIN
     Indication: Contraception
     Dosage: 150 PER 35 MICROGRAM, QD  (ONCE DAILY)
  2. XULANE [Suspect]
     Active Substance: ETHINYL ESTRADIOL\NORELGESTROMIN
     Dosage: 150 PER 35 MICROGRAM, QD (ONCE DAILY)

REACTIONS (4)
  - Irritability [Unknown]
  - Application site dryness [Unknown]
  - Application site discolouration [Unknown]
  - Application site erythema [Unknown]
